FAERS Safety Report 9965675 (Version 1)
Quarter: 2014Q1

REPORT INFORMATION
  Report Type: Spontaneous
  Country: US (occurrence: US)
  Receive Date: 20140305
  Receipt Date: 20140305
  Transmission Date: 20141002
  Serious: No
  Sender: FDA-Public Use
  Company Number: US-ABBVIE-13P-163-1125708-00

PATIENT
  Sex: Female
  Weight: 54.48 kg

DRUGS (7)
  1. HUMIRA [Suspect]
     Indication: MIXED CONNECTIVE TISSUE DISEASE
     Dates: start: 201306
  2. METHOTREXATE [Concomitant]
     Indication: MIXED CONNECTIVE TISSUE DISEASE
  3. FOLIC ACID [Concomitant]
     Indication: VITAMIN SUPPLEMENTATION
  4. BUTRANS [Concomitant]
     Indication: PAIN
  5. NORTRIPTYLINE [Concomitant]
     Indication: DEPRESSION
  6. NUCYNTA ER [Concomitant]
     Indication: PAIN
  7. MEDROL [Concomitant]
     Indication: MIXED CONNECTIVE TISSUE DISEASE

REACTIONS (1)
  - Injection site pain [Recovered/Resolved]
